FAERS Safety Report 14638395 (Version 1)
Quarter: 2018Q1

REPORT INFORMATION
  Report Type: Spontaneous
  Country: US (occurrence: US)
  Receive Date: 20180314
  Receipt Date: 20180314
  Transmission Date: 20180509
  Serious: No
  Sender: FDA-Public Use
  Company Number: US-PFIZER INC-2016481048

PATIENT
  Age: 87 Year
  Sex: Male

DRUGS (47)
  1. SUSTIVA [Concomitant]
     Active Substance: EFAVIRENZ
     Dosage: 50 MG, UNK
  2. SYMAX-SL [Concomitant]
     Dosage: 0.125 MG, UNK
     Route: 060
  3. SYNJARDY [Concomitant]
     Active Substance: EMPAGLIFLOZIN\METFORMIN HYDROCHLORIDE
     Dosage: UNK
  4. SYNJARDY XR [Concomitant]
     Active Substance: EMPAGLIFLOZIN\METFORMIN HYDROCHLORIDE
     Dosage: UNK
  5. SYNRIBO [Concomitant]
     Active Substance: OMACETAXINE MEPESUCCINATE
     Dosage: 3.5 MG, UNK
     Route: 058
  6. SYNTHROID [Concomitant]
     Active Substance: LEVOTHYROXINE SODIUM
     Dosage: 100 UG, UNK
  7. SUTENT [Suspect]
     Active Substance: SUNITINIB MALATE
     Dosage: 50 MG, UNK
  8. SYNAGIS [Concomitant]
     Active Substance: PALIVIZUMAB
     Dosage: UNK
     Route: 030
  9. SYNJARDY XR [Concomitant]
     Active Substance: EMPAGLIFLOZIN\METFORMIN HYDROCHLORIDE
     Dosage: UNK
  10. SYNJARDY XR [Concomitant]
     Active Substance: EMPAGLIFLOZIN\METFORMIN HYDROCHLORIDE
     Dosage: UNK
  11. SYNTHROID [Concomitant]
     Active Substance: LEVOTHYROXINE SODIUM
     Dosage: 200 UG, UNK
  12. LEVOCETIRIZINE [Concomitant]
     Active Substance: LEVOCETIRIZINE
     Dosage: 5 MG, UNK
  13. SYLATRON [Concomitant]
     Active Substance: PEGINTERFERON ALFA-2B
     Dosage: 100 UG, UNK
     Route: 042
  14. SYMBICORT [Concomitant]
     Active Substance: BUDESONIDE\FORMOTEROL FUMARATE DIHYDRATE
     Dosage: UNK
  15. SYNJARDY [Concomitant]
     Active Substance: EMPAGLIFLOZIN\METFORMIN HYDROCHLORIDE
     Dosage: UNK
  16. SYNTHROID [Concomitant]
     Active Substance: LEVOTHYROXINE SODIUM
     Dosage: 25 UG, UNK
  17. SUSTIVA [Concomitant]
     Active Substance: EFAVIRENZ
     Dosage: 600 MG, UNK
  18. SYMLINPEN [Concomitant]
     Active Substance: PRAMLINTIDE ACETATE
     Dosage: UNK
     Route: 058
  19. SUSTIVA [Concomitant]
     Active Substance: EFAVIRENZ
     Dosage: 200 MG, UNK
  20. SYMBICORT [Concomitant]
     Active Substance: BUDESONIDE\FORMOTEROL FUMARATE DIHYDRATE
     Dosage: UNK
  21. SYNTHROID [Concomitant]
     Active Substance: LEVOTHYROXINE SODIUM
     Dosage: 112 UG, UNK
  22. SYNTHROID [Concomitant]
     Active Substance: LEVOTHYROXINE SODIUM
     Dosage: 150 UG, UNK
  23. SULFAMETHOXAZOLE [Concomitant]
     Active Substance: SULFAMETHOXAZOLE
     Dosage: UNK
  24. SUTENT [Suspect]
     Active Substance: SUNITINIB MALATE
     Indication: BLADDER NEOPLASM
     Dosage: 12.5 MG, UNK
  25. SYLATRON [Concomitant]
     Active Substance: PEGINTERFERON ALFA-2B
     Dosage: 200 UG, UNK
     Route: 058
  26. SYLATRON [Concomitant]
     Active Substance: PEGINTERFERON ALFA-2B
     Dosage: 600 UG, UNK
     Route: 058
  27. SYMAX SR [Concomitant]
     Active Substance: HYOSCYAMINE SULFATE
     Dosage: 0.375 MG, UNK
  28. SYNAGIS [Concomitant]
     Active Substance: PALIVIZUMAB
     Dosage: UNK
     Route: 030
  29. SYNAGIS [Concomitant]
     Active Substance: PALIVIZUMAB
     Dosage: UNK
     Route: 045
  30. SYMAX [Concomitant]
     Active Substance: HYOSCYAMINE SULFATE
     Dosage: 0.125 MG, UNK
  31. SYNERCID [Concomitant]
     Active Substance: DALFOPRISTIN\QUINUPRISTIN
     Dosage: 500 MG, UNK
     Route: 042
  32. SYNJARDY [Concomitant]
     Active Substance: EMPAGLIFLOZIN\METFORMIN HYDROCHLORIDE
     Dosage: UNK
  33. SYNJARDY [Concomitant]
     Active Substance: EMPAGLIFLOZIN\METFORMIN HYDROCHLORIDE
     Dosage: UNK
  34. SYNJARDY XR [Concomitant]
     Active Substance: EMPAGLIFLOZIN\METFORMIN HYDROCHLORIDE
     Dosage: UNK
  35. SYNTHROID [Concomitant]
     Active Substance: LEVOTHYROXINE SODIUM
     Dosage: 125 UG, UNK
  36. SYNTHROID [Concomitant]
     Active Substance: LEVOTHYROXINE SODIUM
     Dosage: 137 UG, UNK
  37. SYNTHROID [Concomitant]
     Active Substance: LEVOTHYROXINE SODIUM
     Dosage: 175 UG, UNK
  38. SYMLINPEN [Concomitant]
     Active Substance: PRAMLINTIDE ACETATE
     Dosage: UNK
     Route: 058
  39. SUTENT [Suspect]
     Active Substance: SUNITINIB MALATE
     Indication: METASTATIC RENAL CELL CARCINOMA
     Dosage: 37.5 MG, CYCLIC (28 DAYS ON/14 DAYS OFF)
     Route: 048
  40. SUTENT [Suspect]
     Active Substance: SUNITINIB MALATE
     Dosage: 25 MG, UNK
  41. SYEDA [Concomitant]
     Active Substance: DROSPIRENONE\ETHINYL ESTRADIOL
     Dosage: UNK
  42. SYLATRON [Concomitant]
     Active Substance: PEGINTERFERON ALFA-2B
     Dosage: 300 UG, UNK
     Route: 058
  43. MEKINIST [Concomitant]
     Active Substance: TRAMETINIB DIMETHYL SULFOXIDE
     Dosage: 2 MG, UNK
  44. SYLATRON [Concomitant]
     Active Substance: PEGINTERFERON ALFA-2B
     Dosage: 400 UG, UNK
     Route: 042
  45. IMBRUVICA [Concomitant]
     Active Substance: IBRUTINIB
     Dosage: 140 MG, UNK
  46. MEKINIST [Concomitant]
     Active Substance: TRAMETINIB DIMETHYL SULFOXIDE
     Dosage: 0.5 MG, UNK
  47. METHOTREXATE. [Concomitant]
     Active Substance: METHOTREXATE
     Dosage: 2.5 MG, UNK

REACTIONS (1)
  - Neoplasm progression [Unknown]
